FAERS Safety Report 9749259 (Version 1)
Quarter: 2013Q4

REPORT INFORMATION
  Report Type: Spontaneous
  Country: US (occurrence: US)
  Receive Date: 20131212
  Receipt Date: 20131212
  Transmission Date: 20140711
  Serious: No
  Sender: FDA-Public Use
  Company Number: US-TEVA-394229USA

PATIENT
  Age: 23 Year
  Sex: Female
  Weight: 102.15 kg

DRUGS (4)
  1. PARAGARD 380A [Suspect]
     Indication: CONTRACEPTION
     Route: 015
     Dates: start: 20130220, end: 20130322
  2. IRON [Concomitant]
     Indication: SUPPLEMENTATION THERAPY
  3. PRENATAL VITAMINS [Concomitant]
     Indication: SUPPLEMENTATION THERAPY
  4. COLACE [Concomitant]
     Indication: FAECES HARD

REACTIONS (1)
  - Device expulsion [Recovered/Resolved]
